FAERS Safety Report 14549776 (Version 2)
Quarter: 2019Q4

REPORT INFORMATION
  Report Type: Report from Study
  Country: None (occurrence: US)
  Receive Date: 20180219
  Receipt Date: 20191010
  Transmission Date: 20200122
  Serious: Yes (Hospitalization, Other)
  Sender: FDA-Public Use
  Company Number: US-ABBVIE-18P-163-2255781-00

PATIENT
  Sex: Female

DRUGS (1)
  1. VENCLEXTA [Suspect]
     Active Substance: VENETOCLAX
     Indication: CHRONIC LYMPHOCYTIC LEUKAEMIA
     Route: 048
     Dates: start: 20161107

REACTIONS (17)
  - Depression [Unknown]
  - Hyperhidrosis [Recovering/Resolving]
  - Hypertension [Unknown]
  - Haemolytic anaemia [Unknown]
  - Sensation of foreign body [Unknown]
  - Abdominal distension [Unknown]
  - Blood pressure abnormal [Unknown]
  - Weight increased [Unknown]
  - Sleep-related eating disorder [Unknown]
  - Hospitalisation [Unknown]
  - Chronic lymphocytic leukaemia [Unknown]
  - White blood cell count increased [Unknown]
  - Increased appetite [Unknown]
  - Hypertension [Unknown]
  - Rash [Unknown]
  - Anxiety [Unknown]
  - Stomatitis [Unknown]

NARRATIVE: CASE EVENT DATE: 2016
